FAERS Safety Report 8034372-6 (Version None)
Quarter: 2012Q1

REPORT INFORMATION
  Report Type: 
  Country: None (occurrence: None)
  Receive Date: 20120110
  Receipt Date: 20120103
  Transmission Date: 20120608
  Serious: Yes (Hospitalization)
  Sender: FDA-Public Use
  Company Number: PHHO2012ES000464

PATIENT
  Sex: Male
  Weight: 87 kg

DRUGS (4)
  1. DIGOXIN [Suspect]
  2. ENALAPRIL MALEATE [Suspect]
     Indication: CARDIAC FAILURE
     Dosage: DOUBLE BLINDED
     Route: 048
     Dates: start: 20101125
  3. BLINDED ALISKIREN [Suspect]
     Indication: CARDIAC FAILURE
     Dosage: DOUBLE BLINDED
     Route: 048
     Dates: start: 20101125
  4. BLINDED NO TREATMENT RECEIVED [Suspect]
     Indication: CARDIAC FAILURE
     Dosage: DOUBLE BLINDED
     Route: 048
     Dates: start: 20101125

REACTIONS (2)
  - CONCOMITANT DISEASE PROGRESSION [None]
  - TOXICITY TO VARIOUS AGENTS [None]
